FAERS Safety Report 17830843 (Version 2)
Quarter: 2020Q2

REPORT INFORMATION
  Report Type: Spontaneous
  Country: CH (occurrence: CH)
  Receive Date: 20200527
  Receipt Date: 20200527
  Transmission Date: 20200714
  Serious: Yes (Other)
  Sender: FDA-Public Use
  Company Number: CH-JNJFOC-20200514694

PATIENT
  Age: 61 Year
  Sex: Female

DRUGS (49)
  1. CLARITHROMYCINE [Suspect]
     Active Substance: CLARITHROMYCIN
     Indication: PRODUCT USED FOR UNKNOWN INDICATION
     Route: 065
     Dates: start: 20200401, end: 20200402
  2. DIAMOX                             /00016901/ [Concomitant]
     Active Substance: ACETAZOLAMIDE
     Dates: start: 20200408, end: 20200408
  3. DISTRANEURIN                       /00027501/ [Concomitant]
     Active Substance: CLOMETHIAZOLE
     Dates: start: 20200412, end: 20200413
  4. NOZINAN                            /00038601/ [Concomitant]
     Active Substance: LEVOMEPROMAZINE
     Dates: start: 20200419, end: 20200419
  5. PROPOFOL. [Concomitant]
     Active Substance: PROPOFOL
     Dates: start: 20200413, end: 20200414
  6. HALDOL [Suspect]
     Active Substance: HALOPERIDOL
     Indication: PRODUCT USED FOR UNKNOWN INDICATION
     Route: 065
     Dates: start: 20200416, end: 20200416
  7. LEXOTANIL [Concomitant]
     Active Substance: BROMAZEPAM
     Dates: start: 20200419, end: 20200420
  8. MOVICOL [Concomitant]
     Active Substance: POLYETHYLENE GLYCOL 3350\POTASSIUM CHLORIDE\SODIUM BICARBONATE\SODIUM CHLORIDE
     Dates: start: 20200404
  9. DEXDOR [Concomitant]
     Active Substance: DEXMEDETOMIDINE HYDROCHLORIDE
     Dates: start: 20200423
  10. ZITHROMAX [Suspect]
     Active Substance: AZITHROMYCIN DIHYDRATE
     Indication: PRODUCT USED FOR UNKNOWN INDICATION
     Route: 065
     Dates: start: 20200402, end: 20200406
  11. CLEXANE [Suspect]
     Active Substance: ENOXAPARIN SODIUM
     Route: 065
     Dates: start: 20200404, end: 20200417
  12. LASIX [Suspect]
     Active Substance: FUROSEMIDE
     Indication: PRODUCT USED FOR UNKNOWN INDICATION
     Route: 065
     Dates: start: 20200406, end: 20200406
  13. LASIX [Suspect]
     Active Substance: FUROSEMIDE
     Dates: start: 20200421, end: 20200423
  14. NEXIUM [Suspect]
     Active Substance: ESOMEPRAZOLE MAGNESIUM
     Indication: PRODUCT USED FOR UNKNOWN INDICATION
     Route: 065
     Dates: end: 20200405
  15. IPRAMOL [Concomitant]
     Active Substance: ALBUTEROL SULFATE\IPRATROPIUM BROMIDE
     Dates: start: 20200407, end: 20200409
  16. SINTENYL [Concomitant]
     Active Substance: FENTANYL CITRATE
     Dates: start: 20200403, end: 20200409
  17. PROPOFOL. [Concomitant]
     Active Substance: PROPOFOL
     Dates: start: 20200407, end: 20200409
  18. PROPOFOL. [Concomitant]
     Active Substance: PROPOFOL
     Dates: start: 20200416, end: 20200423
  19. TRACRIUM [Concomitant]
     Active Substance: ATRACURIUM BESYLATE
     Dates: start: 20200417, end: 20200417
  20. CEFTRIAXONE. [Suspect]
     Active Substance: CEFTRIAXONE
     Indication: PRODUCT USED FOR UNKNOWN INDICATION
     Route: 065
     Dates: start: 20200401, end: 20200405
  21. DIAMOX                             /00016901/ [Concomitant]
     Active Substance: ACETAZOLAMIDE
     Dates: start: 20200419, end: 20200419
  22. DEXDOR [Concomitant]
     Active Substance: DEXMEDETOMIDINE HYDROCHLORIDE
     Dates: start: 20200414, end: 20200419
  23. DORMICUM                           /00036201/ [Concomitant]
     Active Substance: NITRAZEPAM
     Dates: start: 20200419, end: 20200420
  24. TRACRIUM [Concomitant]
     Active Substance: ATRACURIUM BESYLATE
     Dates: start: 20200403, end: 20200404
  25. ANXIOLIT [Suspect]
     Active Substance: OXAZEPAM
     Indication: PRODUCT USED FOR UNKNOWN INDICATION
     Route: 065
     Dates: start: 20200408, end: 20200411
  26. NEXIUM [Suspect]
     Active Substance: ESOMEPRAZOLE MAGNESIUM
     Route: 065
     Dates: start: 20200423
  27. TEMESTA                            /00273201/ [Suspect]
     Active Substance: LORAZEPAM
     Indication: PRODUCT USED FOR UNKNOWN INDICATION
     Route: 065
     Dates: start: 20200416, end: 20200416
  28. DIAMOX                             /00016901/ [Concomitant]
     Active Substance: ACETAZOLAMIDE
     Dates: start: 20200415, end: 20200415
  29. NORADRENALINE                      /00127501/ [Concomitant]
     Active Substance: NOREPINEPHRINE
     Dates: start: 20200403, end: 20200405
  30. NORADRENALINE                      /00127501/ [Concomitant]
     Active Substance: NOREPINEPHRINE
     Dates: start: 20200413, end: 20200423
  31. TRACRIUM [Concomitant]
     Active Substance: ATRACURIUM BESYLATE
     Dates: start: 20200413, end: 20200414
  32. REMDESIVIR. [Suspect]
     Active Substance: REMDESIVIR
     Indication: PRODUCT USED FOR UNKNOWN INDICATION
     Route: 065
     Dates: start: 20200405, end: 20200413
  33. CLEXANE [Suspect]
     Active Substance: ENOXAPARIN SODIUM
     Indication: PRODUCT USED FOR UNKNOWN INDICATION
     Route: 065
     Dates: end: 20200403
  34. DAFALGAN [Suspect]
     Active Substance: ACETAMINOPHEN
     Route: 065
     Dates: start: 20200417, end: 20200418
  35. QUETIAPINE. [Suspect]
     Active Substance: QUETIAPINE
     Indication: PRODUCT USED FOR UNKNOWN INDICATION
     Route: 065
     Dates: start: 20200414, end: 20200414
  36. NOVORAPID [Concomitant]
     Active Substance: INSULIN ASPART
     Dates: start: 20200420, end: 20200420
  37. SINTENYL [Concomitant]
     Active Substance: FENTANYL CITRATE
     Dates: start: 20200411, end: 20200423
  38. AMLODIPINE [Suspect]
     Active Substance: AMLODIPINE BESYLATE
     Indication: PRODUCT USED FOR UNKNOWN INDICATION
     Route: 065
     Dates: start: 20200410, end: 20200410
  39. LASIX [Suspect]
     Active Substance: FUROSEMIDE
     Route: 065
     Dates: start: 20200408, end: 20200411
  40. HEPARINE                           /00027701/ [Concomitant]
     Active Substance: HEPARIN SODIUM
     Dates: start: 20200418, end: 20200423
  41. MORPHINE [Concomitant]
     Active Substance: MORPHINE
     Dates: start: 20200410, end: 20200411
  42. SOLU-MEDROL [Concomitant]
     Active Substance: METHYLPREDNISOLONE SODIUM SUCCINATE
     Dates: start: 20200420, end: 20200423
  43. DEXDOR [Concomitant]
     Active Substance: DEXMEDETOMIDINE HYDROCHLORIDE
     Dates: start: 20200407, end: 20200410
  44. DORMICUM                           /00036201/ [Concomitant]
     Active Substance: NITRAZEPAM
     Dates: start: 20200403, end: 20200405
  45. DAFALGAN [Suspect]
     Active Substance: ACETAMINOPHEN
     Indication: PRODUCT USED FOR UNKNOWN INDICATION
     Route: 065
     Dates: start: 20200408, end: 20200413
  46. DORMICUM                           /00036201/ [Concomitant]
     Active Substance: NITRAZEPAM
     Dates: start: 20200416, end: 20200416
  47. NORADRENALINE                      /00127501/ [Concomitant]
     Active Substance: NOREPINEPHRINE
     Dates: start: 20200408, end: 20200410
  48. PROPOFOL. [Concomitant]
     Active Substance: PROPOFOL
     Dates: start: 20200404, end: 20200405
  49. ROCURONIUM [Concomitant]
     Active Substance: ROCURONIUM BROMIDE
     Dates: start: 20200419, end: 20200419

REACTIONS (1)
  - Rash erythematous [Not Recovered/Not Resolved]

NARRATIVE: CASE EVENT DATE: 20200421
